FAERS Safety Report 16629861 (Version 1)
Quarter: 2019Q3

REPORT INFORMATION
  Report Type: Spontaneous
  Country: SE (occurrence: SE)
  Receive Date: 20190725
  Receipt Date: 20190725
  Transmission Date: 20191004
  Serious: Yes (Hospitalization)
  Sender: FDA-Public Use
  Company Number: SE-TEVA-2019-SE-1082029

PATIENT
  Age: 83 Year
  Sex: Male

DRUGS (7)
  1. SUPREFACT DEPOT [Concomitant]
     Dates: start: 20181010
  2. CANODERM 5 % KR?M [Concomitant]
     Dates: start: 20190513
  3. CANDESARTAN. [Suspect]
     Active Substance: CANDESARTAN
     Dates: end: 201905
  4. METFORMIN [Suspect]
     Active Substance: METFORMIN HYDROCHLORIDE
     Dates: end: 201905
  5. XARELTO [Concomitant]
     Active Substance: RIVAROXABAN
  6. ALLOPURINOL. [Suspect]
     Active Substance: ALLOPURINOL
     Dates: end: 201905
  7. SPIRONOLACTONE. [Suspect]
     Active Substance: SPIRONOLACTONE
     Dates: end: 201905

REACTIONS (2)
  - Renal failure [Recovering/Resolving]
  - Hyperkalaemia [Recovering/Resolving]

NARRATIVE: CASE EVENT DATE: 20190527
